FAERS Safety Report 22656245 (Version 12)
Quarter: 2024Q2

REPORT INFORMATION
  Report Type: Report from Study
  Country: CA (occurrence: CA)
  Receive Date: 20230629
  Receipt Date: 20240625
  Transmission Date: 20240715
  Serious: Yes (Hospitalization, Other)
  Sender: FDA-Public Use
  Company Number: CA-GILEAD-2023-0634617

PATIENT
  Age: 61 Year
  Sex: Female

DRUGS (12)
  1. SACITUZUMAB GOVITECAN-HZIY [Suspect]
     Active Substance: SACITUZUMAB GOVITECAN-HZIY
     Indication: Triple negative breast cancer
     Dosage: 800 MG
     Route: 042
     Dates: start: 20230614, end: 20230621
  2. SACITUZUMAB GOVITECAN-HZIY [Suspect]
     Active Substance: SACITUZUMAB GOVITECAN-HZIY
     Dosage: 830 MG
     Route: 042
     Dates: start: 20230712
  3. SACITUZUMAB GOVITECAN-HZIY [Suspect]
     Active Substance: SACITUZUMAB GOVITECAN-HZIY
     Dosage: 780 MG
     Route: 042
     Dates: start: 20230712
  4. SACITUZUMAB GOVITECAN-HZIY [Suspect]
     Active Substance: SACITUZUMAB GOVITECAN-HZIY
     Dosage: 830 MG
     Route: 042
     Dates: start: 20230614
  5. SACITUZUMAB GOVITECAN-HZIY [Suspect]
     Active Substance: SACITUZUMAB GOVITECAN-HZIY
     Dosage: UNSPECIFIED CYCLE D1, D8
     Route: 042
     Dates: start: 20230912, end: 20230928
  6. SACITUZUMAB GOVITECAN-HZIY [Suspect]
     Active Substance: SACITUZUMAB GOVITECAN-HZIY
     Dosage: 610 MG
     Route: 042
     Dates: start: 20231019
  7. SACITUZUMAB GOVITECAN-HZIY [Suspect]
     Active Substance: SACITUZUMAB GOVITECAN-HZIY
     Dosage: 585 MG (7.5 MG/KG)
     Route: 042
     Dates: start: 20240111, end: 20240118
  8. SACITUZUMAB GOVITECAN-HZIY [Suspect]
     Active Substance: SACITUZUMAB GOVITECAN-HZIY
     Dosage: UNSPECIFIED CYCLE D1, D8
     Route: 065
     Dates: start: 20231130, end: 20231207
  9. SACITUZUMAB GOVITECAN-HZIY [Suspect]
     Active Substance: SACITUZUMAB GOVITECAN-HZIY
     Dosage: 585 MG
     Route: 042
     Dates: start: 20230614
  10. SACITUZUMAB GOVITECAN-HZIY [Suspect]
     Active Substance: SACITUZUMAB GOVITECAN-HZIY
     Dosage: UNK, CYCLE DAY 1 ON 12-FEB-2024 AND DAY 8 ON 19-FEB-2024.
     Route: 042
     Dates: start: 20240219
  11. PREDNISONE [Concomitant]
     Active Substance: PREDNISONE
  12. METHOTREXATE [Concomitant]
     Active Substance: METHOTREXATE

REACTIONS (14)
  - Ulcerative keratitis [Unknown]
  - Staphylococcal infection [Unknown]
  - Pyrexia [Unknown]
  - Musculoskeletal chest pain [Unknown]
  - Fungating wound [Unknown]
  - Abscess [Unknown]
  - Neutropenia [Unknown]
  - Weight fluctuation [Unknown]
  - Neutrophil count decreased [Not Recovered/Not Resolved]
  - Inappropriate schedule of product administration [Unknown]
  - Off label use [Not Recovered/Not Resolved]
  - Product dose omission issue [Unknown]
  - Product dose omission issue [Not Recovered/Not Resolved]
  - Inappropriate schedule of product administration [Unknown]

NARRATIVE: CASE EVENT DATE: 20240304
